FAERS Safety Report 5498910-X (Version None)
Quarter: 2007Q4

REPORT INFORMATION
  Report Type: 
  Country: None (occurrence: None)
  Receive Date: 20071026
  Receipt Date: 20070814
  Transmission Date: 20080405
  Serious: No
  Sender: FDA-Public Use
  Company Number: A0668383A

PATIENT
  Age: 82 Year
  Sex: Female

DRUGS (3)
  1. ADVAIR DISKUS 100/50 [Suspect]
     Indication: BRONCHIAL DISORDER
     Dosage: 1PUFF TWICE PER DAY
     Route: 055
  2. CIPRO [Concomitant]
  3. NASONEX [Concomitant]

REACTIONS (8)
  - CANDIDIASIS [None]
  - GLOSSITIS [None]
  - GLOSSODYNIA [None]
  - SKIN IRRITATION [None]
  - STOMATITIS [None]
  - TONGUE DISORDER [None]
  - VAGINAL ERYTHEMA [None]
  - VULVOVAGINAL MYCOTIC INFECTION [None]
